FAERS Safety Report 11620847 (Version 1)
Quarter: 2015Q4

REPORT INFORMATION
  Report Type: Spontaneous
  Country: US (occurrence: US)
  Receive Date: 20151012
  Receipt Date: 20151012
  Transmission Date: 20160304
  Serious: Yes (Other)
  Sender: FDA-Public Use
  Company Number: US-LPDUSPRD-20150780

PATIENT
  Age: 7 Year
  Sex: Female

DRUGS (1)
  1. LEVETIRACETAM INJECTION (0517-3605-01) [Suspect]
     Active Substance: LEVETIRACETAM
     Dosage: DOSE NOT PROVIDED
     Route: 065

REACTIONS (3)
  - Pre-existing condition improved [Unknown]
  - Seizure [Unknown]
  - Status epilepticus [Unknown]
